FAERS Safety Report 8255493-9 (Version None)
Quarter: 2012Q1

REPORT INFORMATION
  Report Type: 
  Country: None (occurrence: None)
  Receive Date: 20120322
  Receipt Date: 20111201
  Transmission Date: 20120608
  Serious: Yes (Hospitalization)
  Sender: FDA-Public Use
  Company Number: UTC-012950

PATIENT
  Age: 52 Year
  Sex: Female
  Weight: 150.9 kg

DRUGS (5)
  1. DIURETICS (DIURETICS) [Concomitant]
  2. ADCIRCA [Concomitant]
  3. COUMADIN [Concomitant]
  4. LETAIRIS [Concomitant]
  5. TYVASO [Suspect]
     Indication: PULMONARY ARTERIAL HYPERTENSION
     Dosage: 120 MCG (30 MCG,4 IN 1 D)INHALATION
     Route: 055
     Dates: start: 20101013

REACTIONS (2)
  - RESPIRATORY FAILURE [None]
  - FLUID IMBALANCE [None]
